FAERS Safety Report 7280638-7 (Version None)
Quarter: 2011Q1

REPORT INFORMATION
  Report Type: 
  Country: None (occurrence: None)
  Receive Date: 20110126
  Receipt Date: 20110118
  Transmission Date: 20110831
  Serious: Yes (Other)
  Sender: FDA-Public Use
  Company Number: 2011AC000006

PATIENT
  Sex: Female

DRUGS (1)
  1. DIGOXIN [Suspect]
     Dosage: 0.250 MG;QD;PO
     Route: 048
     Dates: start: 20071001

REACTIONS (6)
  - WRONG DRUG ADMINISTERED [None]
  - MULTIPLE INJURIES [None]
  - DRUG DISPENSING ERROR [None]
  - PAIN [None]
  - UNEVALUABLE EVENT [None]
  - ECONOMIC PROBLEM [None]
